FAERS Safety Report 8580934-7 (Version None)
Quarter: 2012Q3

REPORT INFORMATION
  Report Type: 
  Country: None (occurrence: None)
  Receive Date: 20120727
  Receipt Date: 20120717
  Transmission Date: 20120928
  Serious: Yes (Other)
  Sender: FDA-Public Use
  Company Number: A0986588A

PATIENT
  Age: 83 Year
  Sex: Female

DRUGS (3)
  1. VERAPAMIL [Suspect]
     Indication: HYPERTENSION
  2. KETOCONAZOLE [Suspect]
     Dosage: 300 MG/FOUR TIMES PER DAY/ORAL
     Route: 048
  3. POTASSIUM SALT [Concomitant]

REACTIONS (9)
  - DRUG LEVEL INCREASED [None]
  - ALKALOSIS HYPOCHLORAEMIC [None]
  - CUSHING'S SYNDROME [None]
  - MENTAL STATUS CHANGES [None]
  - ATRIOVENTRICULAR BLOCK COMPLETE [None]
  - HYPERTENSION [None]
  - HYPOKALAEMIA [None]
  - HYPOTENSION [None]
  - MUSCULAR WEAKNESS [None]
